FAERS Safety Report 6275983-8 (Version None)
Quarter: 2009Q3

REPORT INFORMATION
  Report Type: 
  Country: None (occurrence: None)
  Receive Date: 20090720
  Receipt Date: 20090713
  Transmission Date: 20100115
  Serious: Yes (Other)
  Sender: FDA-Public Use
  Company Number: 2009SP015411

PATIENT
  Sex: Female

DRUGS (1)
  1. COPPERTONE SPORT LOTION (SPF 50) [Suspect]
     Dosage: ONCE; TOP
     Route: 061

REACTIONS (1)
  - RASH [None]
